FAERS Safety Report 5761256-6 (Version None)
Quarter: 2008Q2

REPORT INFORMATION
  Report Type: 
  Country: None (occurrence: None)
  Receive Date: 20080606
  Receipt Date: 20080604
  Transmission Date: 20081010
  Serious: Yes (Other)
  Sender: FDA-Public Use
  Company Number: IN-ASTRAZENECA-2008AC01435

PATIENT
  Age: 38 Year
  Sex: Female

DRUGS (2)
  1. BUPIVACAINE [Suspect]
     Indication: ANAESTHESIA
     Route: 008
  2. PENTAZOCINE LACTATE [Concomitant]
     Indication: ANALGESIA
     Dosage: 120 MG / 50 ML AT 2 ML/HR

REACTIONS (3)
  - PERONEAL NERVE PALSY [None]
  - SENSORY LOSS [None]
  - THERMAL BURN [None]
